FAERS Safety Report 5228406-1 (Version None)
Quarter: 2007Q1

REPORT INFORMATION
  Report Type: 
  Country: None (occurrence: None)
  Receive Date: 20070131
  Receipt Date: 20070131
  Transmission Date: 20070707
  Serious: No
  Sender: FDA-Public Use
  Company Number: None

PATIENT
  Age: 46 Year
  Sex: Male

DRUGS (14)
  1. AVELOX [Suspect]
     Indication: PNEUMONIA
     Dosage: 400MG 2 DAY IV
     Route: 042
  2. AMBIEN [Concomitant]
  3. SOMA [Concomitant]
  4. PREDNISONE [Concomitant]
  5. DUONEB [Concomitant]
  6. OXYCONTIN [Concomitant]
  7. PAXIL [Concomitant]
  8. DIOVAN [Concomitant]
  9. PERCOCET [Concomitant]
  10. ADVAIR DISKUS 100/50 [Concomitant]
  11. DURAGESIC-100 [Concomitant]
  12. SPIRIVA [Concomitant]
  13. ZITHROMAX [Concomitant]
  14. ROCEPHIN [Concomitant]

REACTIONS (2)
  - INFUSION RELATED REACTION [None]
  - URTICARIA [None]
